FAERS Safety Report 9852199 (Version 1)
Quarter: 2014Q1

REPORT INFORMATION
  Report Type: Spontaneous
  Country: US (occurrence: US)
  Receive Date: 20140129
  Receipt Date: 20140129
  Transmission Date: 20141002
  Serious: Yes (Other)
  Sender: FDA-Public Use
  Company Number: US-BRACCO-009802

PATIENT
  Sex: Female

DRUGS (8)
  1. LIPITOR [Concomitant]
  2. NEXIUM [Concomitant]
  3. SYNTHROID [Concomitant]
  4. CONTRAST MEDIA [Concomitant]
     Route: 048
     Dates: start: 20130730, end: 20130730
  5. X-RAY CONTRAST MEDIA, IODINATED [Concomitant]
     Route: 042
     Dates: start: 20130730, end: 20130730
  6. PROZAC [Concomitant]
  7. MULTIHANCE [Suspect]
     Indication: NUCLEAR MAGNETIC RESONANCE IMAGING BREAST
     Route: 042
     Dates: start: 20130730, end: 20130730
  8. ESTROGEN [Concomitant]

REACTIONS (1)
  - Anaphylactic reaction [Recovered/Resolved]
